FAERS Safety Report 9303296 (Version 1)
Quarter: 2013Q2

REPORT INFORMATION
  Report Type: Spontaneous
  Country: US (occurrence: US)
  Receive Date: 20130521
  Receipt Date: 20130521
  Transmission Date: 20140414
  Serious: Yes (Other)
  Sender: FDA-Public Use
  Company Number: US-RB-043123-12

PATIENT
  Age: 32 Year
  Sex: Female

DRUGS (5)
  1. SUBOXONE FILM [Suspect]
     Indication: PRODUCT USED FOR UNKNOWN INDICATION
     Dosage: 1 1/2 FILM DAILY
     Route: 065
     Dates: start: 2010, end: 20120731
  2. SUBUTEX [Suspect]
     Indication: PRODUCT USED FOR UNKNOWN INDICATION
     Dosage: 1 1/2 2MG TABLET DAILY
     Route: 065
     Dates: start: 20120731
  3. ZOLOFT [Concomitant]
     Indication: DEPRESSION
     Route: 065
  4. ZOLOFT [Concomitant]
     Indication: DEPRESSION
     Route: 065
  5. LEVOTHYROXINE [Concomitant]
     Indication: HYPOTHYROIDISM
     Route: 065

REACTIONS (3)
  - Substance abuse [Not Recovered/Not Resolved]
  - Exposure during pregnancy [Recovered/Resolved]
  - Foetal heart rate deceleration [Recovered/Resolved]
